FAERS Safety Report 8356478-4 (Version None)
Quarter: 2012Q2

REPORT INFORMATION
  Report Type: 
  Country: None (occurrence: None)
  Receive Date: 20120514
  Receipt Date: 20120508
  Transmission Date: 20120825
  Serious: No
  Sender: FDA-Public Use
  Company Number: US-BAYER-2012-045839

PATIENT
  Sex: Female

DRUGS (1)
  1. CLIMARA [Suspect]
     Dosage: UNK
     Route: 062
     Dates: start: 19950101

REACTIONS (1)
  - AGGRESSION [None]
